FAERS Safety Report 9699635 (Version 1)
Quarter: 2013Q4

REPORT INFORMATION
  Report Type: Report from Study
  Country: US (occurrence: US)
  Receive Date: 20131120
  Receipt Date: 20131120
  Transmission Date: 20140711
  Serious: Yes (Hospitalization, Other)
  Sender: FDA-Public Use
  Company Number: US-GILEAD-2013-0088050

PATIENT
  Age: 61 Year
  Sex: Male

DRUGS (2)
  1. EMTRICITABINE/TENOFOVIR DISOPROXIL FUMARATE [Suspect]
     Indication: HIV INFECTION
     Dosage: UNK
     Dates: start: 2010
  2. ISENTRESS [Concomitant]
     Indication: HIV INFECTION
     Dosage: UNK

REACTIONS (4)
  - Meningitis cryptococcal [Unknown]
  - Abasia [Not Recovered/Not Resolved]
  - Balance disorder [Unknown]
  - Fall [Unknown]
